FAERS Safety Report 17152960 (Version 6)
Quarter: 2020Q1

REPORT INFORMATION
  Report Type: Spontaneous
  Country: DE (occurrence: DE)
  Receive Date: 20191213
  Receipt Date: 20200306
  Transmission Date: 20200409
  Serious: Yes (Hospitalization, Other)
  Sender: FDA-Public Use
  Company Number: DE-EMD SERONO-9134159

PATIENT
  Age: 45 Year
  Sex: Female
  Weight: 60 kg

DRUGS (7)
  1. MAVENCLAD [Suspect]
     Active Substance: CLADRIBINE
     Dosage: FIRST YEAR SECOND WEEK THERAPY 3.5 MG/KG
     Route: 048
     Dates: start: 20180717, end: 20180721
  2. MAVENCLAD [Suspect]
     Active Substance: CLADRIBINE
     Dosage: SECOND YEAR FOURTH WEEK (SECOND WEEK) THERAPY 3.5 MG/KG
     Route: 048
     Dates: start: 20191030, end: 20191103
  3. MAVENCLAD [Suspect]
     Active Substance: CLADRIBINE
     Indication: RELAPSING MULTIPLE SCLEROSIS
     Dosage: FIRST YEAR FIRST WEEK THERAPY 3.5 MG/KG
     Route: 048
     Dates: start: 20180619, end: 20180623
  4. MAVENCLAD [Suspect]
     Active Substance: CLADRIBINE
     Dosage: SECOND YEAR THIRD WEEK (FIRST WEEK) THERAPY 3.5 MG/KG
     Route: 048
     Dates: start: 201906
  5. FAMPYRA [Concomitant]
     Active Substance: DALFAMPRIDINE
     Indication: MULTIPLE SCLEROSIS
     Dosage: TWICE DAILY (MORNING AND AFTERNOON)
     Route: 048
  6. DECORTIN [Suspect]
     Active Substance: PREDNISONE
     Indication: PREMEDICATION
     Dosage: HIGH DOSES
  7. AMLODIPIN                          /00972401/ [Concomitant]
     Active Substance: AMLODIPINE BESYLATE
     Indication: HYPERTENSION
     Dosage: ONCE DAILY MORNING
     Route: 048

REACTIONS (12)
  - Anaphylactic reaction [Recovering/Resolving]
  - Delirium [Recovering/Resolving]
  - Tension headache [Unknown]
  - Goodpasture^s syndrome [Unknown]
  - Glomerulonephritis rapidly progressive [Unknown]
  - Lymphopenia [Not Recovered/Not Resolved]
  - Infection [Recovered/Resolved]
  - Thrombocytopenia [Not Recovered/Not Resolved]
  - Anaemia [Recovering/Resolving]
  - Migraine without aura [Unknown]
  - Treatment noncompliance [Recovered/Resolved]
  - Acute kidney injury [Unknown]

NARRATIVE: CASE EVENT DATE: 20191112
